FAERS Safety Report 21063463 (Version 1)
Quarter: 2022Q3

REPORT INFORMATION
  Report Type: Report from Study
  Country: PA (occurrence: PA)
  Receive Date: 20220711
  Receipt Date: 20220711
  Transmission Date: 20221027
  Serious: Yes (Other)
  Sender: FDA-Public Use
  Company Number: PA-NOVARTISPH-NVSC2022PA155336

PATIENT
  Sex: Female

DRUGS (2)
  1. KISQALI [Suspect]
     Active Substance: RIBOCICLIB
     Indication: Breast cancer metastatic
     Dosage: 400 MG, QD (AT NOON)
     Route: 048
     Dates: start: 20220704
  2. ANASTROZOLE [Suspect]
     Active Substance: ANASTROZOLE
     Indication: Product used for unknown indication
     Dosage: UNK (AT NIGHT)
     Route: 065
     Dates: start: 20220704

REACTIONS (8)
  - Metastases to spine [Unknown]
  - Metastases to bone [Unknown]
  - Metastases to pelvis [Unknown]
  - Bradycardia [Unknown]
  - Spinal pain [Unknown]
  - Breast pain [Unknown]
  - Back pain [Unknown]
  - Pain in extremity [Unknown]
